FAERS Safety Report 21324006 (Version 1)
Quarter: 2022Q3

REPORT INFORMATION
  Report Type: Spontaneous
  Country: US (occurrence: None)
  Receive Date: 20220910
  Receipt Date: 20220910
  Transmission Date: 20221027
  Serious: Yes (Hospitalization, Other)
  Sender: FDA-Public Use
  Company Number: None

PATIENT
  Age: 64 Year
  Sex: Male
  Weight: 97.65 kg

DRUGS (3)
  1. VRAYLAR [Suspect]
     Active Substance: CARIPRAZINE
     Indication: Cyclothymic disorder
     Dosage: FREQUENCY : DAILY;?
     Route: 048
     Dates: start: 20210216, end: 20220725
  2. LISINOPRIL AND HYDROCHLOROTHIAZIDE [Concomitant]
     Active Substance: HYDROCHLOROTHIAZIDE\LISINOPRIL
  3. ASPIRIN [Concomitant]
     Active Substance: ASPIRIN

REACTIONS (8)
  - Panic attack [None]
  - Palpitations [None]
  - Chest pain [None]
  - Dyspnoea [None]
  - Cardiovascular symptom [None]
  - Therapy interrupted [None]
  - Psychotic disorder [None]
  - Anxiety [None]

NARRATIVE: CASE EVENT DATE: 20210714
